FAERS Safety Report 16109812 (Version 1)
Quarter: 2019Q1

REPORT INFORMATION
  Report Type: Spontaneous
  Country: ES (occurrence: ES)
  Receive Date: 20190325
  Receipt Date: 20190325
  Transmission Date: 20190418
  Serious: Yes (Other)
  Sender: FDA-Public Use
  Company Number: ES-AUROBINDO-AUR-APL-2019-014963

PATIENT

DRUGS (3)
  1. VALSARTAN AND HYDROCHLOROTHIAZIDE [Suspect]
     Active Substance: HYDROCHLOROTHIAZIDE\VALSARTAN
     Indication: HYPERTENSION
     Dosage: 0.5 DOSAGE FORM, DAILY (0,5/24 H)
     Route: 065
     Dates: start: 20170401, end: 20181202
  2. TAMSULOSIN [Concomitant]
     Active Substance: TAMSULOSIN
     Indication: BENIGN PROSTATIC HYPERPLASIA
     Dosage: 0.4 MILLIGRAM, DAILY (1/24 H)
     Route: 065
     Dates: start: 20170101
  3. DOLOCATIL [Concomitant]
     Active Substance: ACETAMINOPHEN
     Indication: PAIN
     Dosage: UNK
     Route: 065

REACTIONS (6)
  - Eye pruritus [Recovered/Resolved]
  - Dry eye [Recovered/Resolved]
  - Myalgia [Recovered/Resolved]
  - Pruritus generalised [Recovered/Resolved]
  - Musculoskeletal discomfort [Recovered/Resolved]
  - Fatigue [Recovered/Resolved]

NARRATIVE: CASE EVENT DATE: 20170410
